FAERS Safety Report 4598837-1 (Version None)
Quarter: 2005Q1

REPORT INFORMATION
  Report Type: 
  Country: None (occurrence: None)
  Receive Date: 20050304
  Receipt Date: 20050207
  Transmission Date: 20050727
  Serious: Yes (Death)
  Sender: FDA-Public Use
  Company Number: JP-JNJFOC-20030903939

PATIENT
  Sex: Male

DRUGS (11)
  1. REMICADE [Suspect]
     Indication: CROHN'S DISEASE
     Dosage: 5MG/KG
     Route: 042
  2. DECADRON [Concomitant]
     Route: 042
     Dates: start: 20030702
  3. PENTASA [Concomitant]
     Route: 049
     Dates: start: 20030702
  4. MEROPEN [Concomitant]
     Route: 042
     Dates: start: 20030630, end: 20030704
  5. ATARAX [Concomitant]
     Route: 042
     Dates: start: 20030702
  6. OMEPRAL [Concomitant]
     Route: 042
     Dates: start: 20030629, end: 20030707
  7. NOVOLIN R [Concomitant]
     Dosage: 80-150
     Route: 042
     Dates: start: 20030626, end: 20030707
  8. FOY [Concomitant]
     Route: 042
     Dates: start: 20030629, end: 20030707
  9. MINOCYCLINE HYDROCHLORIDE [Concomitant]
     Route: 042
     Dates: start: 20030704, end: 20030707
  10. ADONA [Concomitant]
     Route: 042
     Dates: start: 20030628, end: 20030707
  11. TRANSAMIN [Concomitant]
     Route: 042
     Dates: start: 20030628, end: 20030707

REACTIONS (5)
  - MULTI-ORGAN FAILURE [None]
  - PERITONITIS [None]
  - PLATELET COUNT DECREASED [None]
  - SEPSIS [None]
  - SHOCK [None]
